FAERS Safety Report 6717534-7 (Version None)
Quarter: 2010Q2

REPORT INFORMATION
  Report Type: 
  Country: None (occurrence: None)
  Receive Date: 20100507
  Receipt Date: 20100507
  Transmission Date: 20101027
  Serious: Yes (Other)
  Sender: FDA-Public Use
  Company Number: None

PATIENT
  Age: 77 Year
  Sex: Male
  Weight: 89.8122 kg

DRUGS (1)
  1. FEBUXOSTAT 40MG [Suspect]
     Indication: GOUT
     Dosage: 40MG DAILY PO
     Route: 048
     Dates: start: 20090401, end: 20100505

REACTIONS (2)
  - BLOOD CREATININE INCREASED [None]
  - GLOMERULAR FILTRATION RATE DECREASED [None]
